FAERS Safety Report 8519974-2 (Version None)
Quarter: 2012Q2

REPORT INFORMATION
  Report Type: 
  Country: None (occurrence: None)
  Receive Date: 20120406
  Receipt Date: 20090921
  Transmission Date: 20120825
  Serious: Yes (Other)
  Sender: FDA-Public Use
  Company Number: PHEH2009US11453

PATIENT
  Age: 78 Year
  Sex: Male

DRUGS (9)
  1. PROTONIX [Concomitant]
  2. PLAVIX [Concomitant]
  3. ASPIRIN [Concomitant]
  4. LASIX [Concomitant]
  5. TASIGNA [Suspect]
     Indication: CHRONIC MYELOID LEUKAEMIA
     Dosage: 400 MG, AM. 200 MG PM, DAILY, ORAL, 200 MG, BID, ORAL
     Route: 048
     Dates: start: 20090708
  6. CRESTOR [Concomitant]
  7. DIGOXIN [Concomitant]
  8. RANEXA [Concomitant]
  9. ISMO [Concomitant]

REACTIONS (2)
  - WHITE BLOOD CELL COUNT DECREASED [None]
  - PNEUMONIA [None]
